FAERS Safety Report 5376182-4 (Version None)
Quarter: 2007Q2

REPORT INFORMATION
  Report Type: 
  Country: None (occurrence: None)
  Receive Date: 20070628
  Receipt Date: 20070618
  Transmission Date: 20071010
  Serious: Yes (Other)
  Sender: FDA-Public Use
  Company Number: 157682ISR

PATIENT
  Age: 58 Month
  Sex: Male

DRUGS (2)
  1. PRAVASTATIN [Suspect]
  2. SIMVASTATIN [Suspect]

REACTIONS (1)
  - GUILLAIN-BARRE SYNDROME [None]
